FAERS Safety Report 4688021-5 (Version None)
Quarter: 2005Q2

REPORT INFORMATION
  Report Type: 
  Country: None (occurrence: None)
  Receive Date: 20050610
  Receipt Date: 20050216
  Transmission Date: 20051028
  Serious: Yes (Life-Threatening, Hospitalization)
  Sender: FDA-Public Use
  Company Number: 2005AP01169

PATIENT
  Age: 20909 Day
  Sex: Female
  Weight: 45 kg

DRUGS (12)
  1. IRESSA [Suspect]
     Indication: NON-SMALL CELL LUNG CANCER
     Route: 048
     Dates: start: 20050124, end: 20050212
  2. IRESSA [Suspect]
     Route: 048
     Dates: start: 20050215, end: 20050215
  3. IRESSA [Suspect]
     Route: 048
  4. PREDONINE [Concomitant]
     Indication: MIXED CONNECTIVE TISSUE DISEASE
     Route: 048
     Dates: start: 20031111
  5. GASTER [Concomitant]
     Indication: PROPHYLAXIS AGAINST GASTROINTESTINAL ULCER
     Route: 048
     Dates: start: 20031111
  6. MEILAX [Concomitant]
     Indication: NEUROSIS
     Route: 048
     Dates: start: 20031216
  7. DORNER [Concomitant]
     Indication: MIXED CONNECTIVE TISSUE DISEASE
     Route: 048
     Dates: start: 20040323
  8. RINDERON [Concomitant]
     Indication: RASH
     Dates: start: 20050131
  9. HIRUDOID [Concomitant]
     Indication: RASH
     Dates: start: 20050131
  10. DALACIN [Concomitant]
     Indication: RASH PAPULAR
     Dates: start: 20050209
  11. SELBEX [Concomitant]
     Indication: GASTRITIS
     Route: 048
     Dates: start: 20050210, end: 20050216
  12. JUVELA NICOTINATE [Concomitant]
     Indication: MIXED CONNECTIVE TISSUE DISEASE
     Route: 048

REACTIONS (5)
  - CYANOSIS [None]
  - OXYGEN SATURATION DECREASED [None]
  - RASH [None]
  - SEPTIC SHOCK [None]
  - URINARY TRACT INFECTION [None]
